FAERS Safety Report 7178463-0 (Version None)
Quarter: 2010Q4

REPORT INFORMATION
  Report Type: 
  Country: None (occurrence: None)
  Receive Date: 20101220
  Receipt Date: 20101216
  Transmission Date: 20110411
  Serious: Yes (Death)
  Sender: FDA-Public Use
  Company Number: US-GILEAD-2010-0034004

PATIENT
  Sex: Female

DRUGS (9)
  1. LETAIRIS [Suspect]
     Indication: PULMONARY ARTERIAL HYPERTENSION
     Route: 048
     Dates: start: 20091117, end: 20091218
  2. LASIX [Concomitant]
  3. COREG [Concomitant]
  4. ALDACTONE [Concomitant]
  5. COUMADIN [Concomitant]
  6. NORVASC [Concomitant]
  7. EFFEXOR [Concomitant]
  8. TRUSOPT [Concomitant]
  9. PREDNISONE [Concomitant]

REACTIONS (1)
  - DEATH [None]
